FAERS Safety Report 7354513-3 (Version None)
Quarter: 2011Q1

REPORT INFORMATION
  Report Type: 
  Country: None (occurrence: None)
  Receive Date: 20110316
  Receipt Date: 20100526
  Transmission Date: 20110831
  Serious: Yes (Hospitalization, Other)
  Sender: FDA-Public Use
  Company Number: US-BAYER-200942872NA

PATIENT
  Sex: Female
  Weight: 104 kg

DRUGS (16)
  1. YAZ [Suspect]
     Indication: PRODUCT USED FOR UNKNOWN INDICATION
     Dosage: UNK
     Route: 048
     Dates: start: 20080821, end: 20091214
  2. YASMIN [Suspect]
     Indication: PRODUCT USED FOR UNKNOWN INDICATION
     Route: 048
  3. TETRACYCLINE [Concomitant]
  4. PAXIL [Concomitant]
  5. SINGULAIR [Concomitant]
     Dosage: UNK
     Dates: start: 20090101
  6. WAL-ITIN D NOS (UNCODEABLE ^UNCLASSIFIABLE^) [Concomitant]
  7. CLARITIN [Concomitant]
  8. PAROXETINE [Concomitant]
  9. RESTASIS [Concomitant]
  10. LOESTRIN 1.5/30 [Concomitant]
     Dosage: UNK
     Dates: start: 20091110
  11. TRINESSA [Concomitant]
     Dosage: UNK
     Dates: start: 20091113, end: 20091215
  12. CLONAZEPAM [Concomitant]
  13. NASONEX [Concomitant]
     Dates: start: 20050101
  14. IPRATROPIUM BROMIDE [Concomitant]
  15. IVEGA [IMMUNOGLOBULIN HUMAN NORMAL] [Concomitant]
  16. SINGULAIR [Concomitant]
     Dates: start: 20010101

REACTIONS (6)
  - ABDOMINAL PAIN [None]
  - ABDOMINAL PAIN UPPER [None]
  - NAUSEA [None]
  - CHOLELITHIASIS [None]
  - CHOLECYSTITIS CHRONIC [None]
  - GALLBLADDER CHOLESTEROLOSIS [None]
